FAERS Safety Report 6923395-3 (Version None)
Quarter: 2010Q3

REPORT INFORMATION
  Report Type: 
  Country: None (occurrence: None)
  Receive Date: 20100813
  Receipt Date: 20100804
  Transmission Date: 20110219
  Serious: Yes (Hospitalization)
  Sender: FDA-Public Use
  Company Number: CA-JNJFOC-20100801840

PATIENT
  Sex: Male
  Weight: 56.8 kg

DRUGS (2)
  1. REMICADE [Suspect]
     Indication: CROHN'S DISEASE
     Route: 042
  2. CELEBREX [Concomitant]
     Indication: BACK PAIN

REACTIONS (2)
  - AMNESIA [None]
  - PNEUMONIA [None]
